FAERS Safety Report 5001594-8 (Version None)
Quarter: 2006Q2

REPORT INFORMATION
  Report Type: 
  Country: None (occurrence: None)
  Receive Date: 20060515
  Receipt Date: 20060419
  Transmission Date: 20061013
  Serious: Yes (Hospitalization, Other)
  Sender: FDA-Public Use
  Company Number: NO-AVENTIS-200614476GDDC

PATIENT
  Age: 59 Year
  Sex: Female

DRUGS (11)
  1. METRONIDAZOLE [Suspect]
     Indication: TOOTH INFECTION
     Route: 048
     Dates: start: 20051118, end: 20051118
  2. ATACAND [Concomitant]
  3. ENBREL [Concomitant]
  4. LANSOPRAZOLE [Concomitant]
  5. CALCIGRAN [Concomitant]
  6. PREDNISOLONE [Concomitant]
  7. BUSCOPAN [Concomitant]
  8. SAROTEX [Concomitant]
  9. FOLINSYRE ^DAK^ [Concomitant]
  10. MUCOMYST [Concomitant]
  11. TERIPARATIDE [Concomitant]

REACTIONS (7)
  - APHASIA [None]
  - BALANCE DISORDER [None]
  - DIPLOPIA [None]
  - DIZZINESS [None]
  - NAUSEA [None]
  - PAIN [None]
  - VISION BLURRED [None]
